FAERS Safety Report 23367921 (Version 1)
Quarter: 2024Q1

REPORT INFORMATION
  Report Type: Spontaneous
  Country: US (occurrence: US)
  Receive Date: 20240105
  Receipt Date: 20240105
  Transmission Date: 20240410
  Serious: No
  Sender: FDA-Public Use
  Company Number: US-SA-2019SA098350

PATIENT
  Sex: Female

DRUGS (1)
  1. ACT WHITENING ANTICAVITY GENTLE MINT [Suspect]
     Active Substance: SODIUM FLUORIDE
     Indication: Product used for unknown indication
     Dosage: DOSE DESCRIPTION : UNK UNK, UNK
     Route: 065

REACTIONS (2)
  - Paraesthesia oral [Unknown]
  - Oral discomfort [Unknown]
